FAERS Safety Report 13559146 (Version 5)
Quarter: 2018Q2

REPORT INFORMATION
  Report Type: Report from Study
  Country: BR (occurrence: BR)
  Receive Date: 20170518
  Receipt Date: 20180613
  Transmission Date: 20180711
  Serious: Yes (Death, Hospitalization, Disabling)
  Sender: FDA-Public Use
  Company Number: BR-ROCHE-1935099

PATIENT
  Age: 61 Year
  Sex: Female
  Weight: 49 kg

DRUGS (18)
  1. NAB-PACLITAXEL [Suspect]
     Active Substance: PACLITAXEL
     Indication: BREAST CANCER METASTATIC
     Dosage: THE DATE OF THE MOST RECENT DOSE OF PACLITAXEL ALBUMIN (100 MG/M2) PRIOR TO SAE ONSET WAS ADMINISTER
     Route: 042
     Dates: start: 20170202
  2. OMEPRAZOLE. [Concomitant]
     Active Substance: OMEPRAZOLE
     Indication: PROPHYLAXIS
     Route: 065
     Dates: start: 20170202, end: 20170513
  3. TRAMADOL. [Concomitant]
     Active Substance: TRAMADOL
     Indication: HEADACHE
     Route: 065
     Dates: start: 20170512, end: 20170514
  4. ATEZOLIZUMAB. [Suspect]
     Active Substance: ATEZOLIZUMAB
     Indication: BREAST CANCER METASTATIC
     Dosage: THE DATE OF THE MOST RECENT DOSE OF BLINDED ATEZOLIZUMAB PRIOR TO SAE ONSET WAS ADMINISTERED ON 13/A
     Route: 042
     Dates: start: 20170202
  5. DIPHENHYDRAMINE. [Concomitant]
     Active Substance: DIPHENHYDRAMINE
     Indication: PREMEDICATION
     Route: 065
     Dates: start: 20170202, end: 20170413
  6. ONDANSETRON [Concomitant]
     Active Substance: ONDANSETRON
     Route: 065
     Dates: start: 20170516, end: 20170602
  7. RANITIDINE. [Concomitant]
     Active Substance: RANITIDINE
     Indication: PREMEDICATION
     Route: 065
     Dates: start: 20170202, end: 20170413
  8. TRAMADOL. [Concomitant]
     Active Substance: TRAMADOL
     Route: 065
     Dates: start: 20170515, end: 20170602
  9. DIPYRONE [Concomitant]
     Active Substance: DIPYRONE
     Indication: HEADACHE
     Route: 065
     Dates: start: 20170512, end: 20170514
  10. ONDANSETRON [Concomitant]
     Active Substance: ONDANSETRON
     Indication: NAUSEA
     Route: 065
     Dates: start: 20170304, end: 20170331
  11. LACTULONA [Concomitant]
     Indication: CONSTIPATION PROPHYLAXIS
     Route: 065
     Dates: start: 20170515, end: 20170519
  12. SALINE [Concomitant]
     Active Substance: SODIUM CHLORIDE
     Dosage: HYDRATION
     Route: 065
     Dates: start: 20170512, end: 20170516
  13. ONDANSETRON [Concomitant]
     Active Substance: ONDANSETRON
     Indication: PREMEDICATION
     Route: 065
     Dates: start: 20170202, end: 20170413
  14. MINERAL OIL. [Concomitant]
     Active Substance: MINERAL OIL
     Indication: CONSTIPATION
     Route: 065
     Dates: start: 20170209, end: 20170511
  15. DIPYRONE [Concomitant]
     Active Substance: DIPYRONE
     Route: 065
     Dates: start: 20170515, end: 20170519
  16. METOCHLOPRAMIDE [Concomitant]
     Active Substance: METOCLOPRAMIDE HYDROCHLORIDE
     Indication: VOMITING
     Route: 065
     Dates: start: 20170512, end: 20170602
  17. MINERAL OIL. [Concomitant]
     Active Substance: MINERAL OIL
     Indication: PROPHYLAXIS
  18. AMITRIPTYLINE [Concomitant]
     Active Substance: AMITRIPTYLINE
     Indication: DEPRESSION
     Route: 065
     Dates: start: 20170407, end: 20170407

REACTIONS (1)
  - Muscular weakness [Not Recovered/Not Resolved]

NARRATIVE: CASE EVENT DATE: 20170328
